FAERS Safety Report 14381534 (Version 1)
Quarter: 2018Q1

REPORT INFORMATION
  Report Type: Other
  Country: US (occurrence: US)
  Receive Date: 20180112
  Receipt Date: 20180112
  Transmission Date: 20180509
  Serious: Yes (Death)
  Sender: FDA-Public Use
  Company Number: US-GENUS_LIFESCIENCES-USA-POI0580201800010

PATIENT
  Age: 37 Year
  Sex: Female

DRUGS (10)
  1. CARBON MONOXIDE [Suspect]
     Active Substance: CARBON MONOXIDE
     Dates: end: 2016
  2. DOXYLAMINE [Suspect]
     Active Substance: DOXYLAMINE
     Dates: end: 2016
  3. DEXTROMETHORPHAN [Suspect]
     Active Substance: DEXTROMETHORPHAN
     Dates: end: 2016
  4. DIAZEPAM. [Suspect]
     Active Substance: DIAZEPAM
     Dates: end: 2016
  5. TAPENTADOL [Suspect]
     Active Substance: TAPENTADOL
     Dates: end: 2016
  6. DIPHENHYDRAMINE. [Suspect]
     Active Substance: DIPHENHYDRAMINE
     Dates: end: 2016
  7. ALCOHOL. [Suspect]
     Active Substance: ALCOHOL
     Dates: end: 2016
  8. OXYCODONE HCL CAPSULES [Suspect]
     Active Substance: OXYCODONE HYDROCHLORIDE
     Dates: end: 2016
  9. ACETAMINOPHEN. [Suspect]
     Active Substance: ACETAMINOPHEN
     Dates: end: 2016
  10. AMPHETAMINE [Suspect]
     Active Substance: AMPHETAMINE
     Dates: end: 2016

REACTIONS (3)
  - Completed suicide [Fatal]
  - Cardiac arrest [Fatal]
  - Respiratory arrest [Fatal]

NARRATIVE: CASE EVENT DATE: 2016
